FAERS Safety Report 26176969 (Version 1)
Quarter: 2025Q4

REPORT INFORMATION
  Report Type: Spontaneous
  Country: US (occurrence: US)
  Receive Date: 20251218
  Receipt Date: 20251218
  Transmission Date: 20260118
  Serious: Yes (Other)
  Sender: BOSTON SCIENTIFIC
  Company Number: US-BSC-2025000118

PATIENT
  Sex: Male

DRUGS (1)
  1. VARITHENA [Suspect]
     Active Substance: POLIDOCANOL
     Indication: Varicose vein

REACTIONS (1)
  - Seizure [Unknown]
